FAERS Safety Report 23231482 (Version 1)
Quarter: 2023Q4

REPORT INFORMATION
  Report Type: Spontaneous
  Country: US (occurrence: US)
  Receive Date: 20231127
  Receipt Date: 20231127
  Transmission Date: 20240110
  Serious: No
  Sender: FDA-Public Use
  Company Number: US-AVADEL CNS PHARMACEUTICALS, LLC-2023AVA00214

PATIENT
  Age: 52 Year
  Sex: Female
  Weight: 49.161 kg

DRUGS (11)
  1. LUMRYZ [Suspect]
     Active Substance: SODIUM OXYBATE
     Indication: Narcolepsy
     Dosage: 9 G, 1X/DAY
     Route: 048
     Dates: start: 20230919
  2. ZINC [Concomitant]
     Active Substance: PYRITHIONE ZINC\ZINC\ZINC CHLORIDE
     Dosage: UNK, 1X/DAY
  3. VITAMIN D3 [Concomitant]
     Active Substance: CHOLECALCIFEROL
     Dosage: 50 ?G, 1X/DAY
  4. VITAMIN B12 [Concomitant]
     Active Substance: CYANOCOBALAMIN
     Dosage: 3000 ?G, 1X/DAY
  5. OSTEO BI-FLEX JOINT HEALTH TRIPLE STRENGTH + TURMERIC [Concomitant]
     Dosage: UNK, 1X/DAY
  6. ASPIRIN [Concomitant]
     Active Substance: ASPIRIN
     Dosage: 81 MG, 2X/WEEK (TUESDAYS AND SATURDAYS)
  7. WAKIX [Concomitant]
     Active Substance: PITOLISANT HYDROCHLORIDE
     Dosage: 17.8 MG, 1X/DAY
  8. LEVOTHYROXINE [Concomitant]
     Active Substance: LEVOTHYROXINE
     Dosage: 50 ?G, 1X/DAY
  9. OMEPRAZOLE [Concomitant]
     Active Substance: OMEPRAZOLE
     Dosage: 40 MG, 1X/DAY
  10. PANTOPRAZOLE [Concomitant]
     Active Substance: PANTOPRAZOLE
     Dosage: 40 MG, 1X/DAY
  11. CITALOPRAM [Concomitant]
     Active Substance: CITALOPRAM HYDROBROMIDE
     Dosage: 20 MG, 1X/DAY

REACTIONS (4)
  - Poor quality sleep [Recovered/Resolved]
  - Initial insomnia [Not Recovered/Not Resolved]
  - Middle insomnia [Not Recovered/Not Resolved]
  - Wrong technique in product usage process [Not Recovered/Not Resolved]

NARRATIVE: CASE EVENT DATE: 20230901
